FAERS Safety Report 5704140-6 (Version None)
Quarter: 2008Q2

REPORT INFORMATION
  Report Type: 
  Country: None (occurrence: None)
  Receive Date: 20080414
  Receipt Date: 20080410
  Transmission Date: 20081010
  Serious: Yes (Hospitalization)
  Sender: FDA-Public Use
  Company Number: US-BRISTOL-MYERS SQUIBB COMPANY-14146450

PATIENT

DRUGS (2)
  1. ABILIFY [Suspect]
  2. LEVAQUIN [Suspect]

REACTIONS (2)
  - EPIDERMOLYSIS [None]
  - INFECTION [None]
